FAERS Safety Report 9878642 (Version 2)
Quarter: 2014Q1

REPORT INFORMATION
  Report Type: Report from Study
  Country: KR (occurrence: KR)
  Receive Date: 20140206
  Receipt Date: 20140206
  Transmission Date: 20141002
  Serious: Yes (Hospitalization)
  Sender: FDA-Public Use
  Company Number: KR-BRISTOL-MYERS SQUIBB COMPANY-20034666

PATIENT
  Age: 64 Year
  Sex: Female

DRUGS (5)
  1. ORENCIA [Suspect]
     Indication: RHEUMATOID ARTHRITIS
     Dosage: ON 07-JUN-2013 ON 21-JUN-2013: TOTAL 3 TIMES
     Route: 042
     Dates: start: 20130524
  2. METHOTREXATE [Concomitant]
     Dosage: ONGOING
     Dates: start: 20080408
  3. FOLIC ACID [Concomitant]
     Dosage: ONGOING
     Dates: start: 20090403
  4. CELECOXIB [Concomitant]
     Dosage: ONGOING
     Dates: start: 20080408
  5. PREDNISOLONE [Concomitant]
     Dosage: ONGOING
     Dates: start: 20080408

REACTIONS (2)
  - Spinal compression fracture [Recovered/Resolved with Sequelae]
  - Fall [Unknown]
